FAERS Safety Report 5960465-0 (Version None)
Quarter: 2008Q4

REPORT INFORMATION
  Report Type: 
  Country: None (occurrence: None)
  Receive Date: 20081120
  Receipt Date: 20081111
  Transmission Date: 20090506
  Serious: No
  Sender: FDA-Public Use
  Company Number: US-B.I. PHARMACEUTICALS,INC./RIDGEFIELD-2008-BP-17083BP

PATIENT
  Age: 45 Year
  Sex: Female

DRUGS (2)
  1. MICARDIS [Suspect]
     Indication: HYPERTENSION
     Dosage: 40MG
     Route: 048
     Dates: start: 20071201, end: 20080601
  2. MICARDIS [Suspect]
     Dosage: 80MG
     Route: 048
     Dates: start: 20080701

REACTIONS (2)
  - DRUG INEFFECTIVE [None]
  - HYPOTENSION [None]
